FAERS Safety Report 7322456-7 (Version None)
Quarter: 2011Q1

REPORT INFORMATION
  Report Type: 
  Country: None (occurrence: None)
  Receive Date: 20110119
  Receipt Date: 20101102
  Transmission Date: 20110831
  Serious: Yes (Other)
  Sender: FDA-Public Use
  Company Number: A-NJ2010-33144

PATIENT
  Age: 49 Year
  Sex: Female
  Weight: 144 kg

DRUGS (2)
  1. TRACLEER [Suspect]
     Indication: PULMONARY ARTERIAL HYPERTENSION
     Dosage: 125 MG BID, ORAL, 62.5 MG, BID, ORAL
     Route: 048
     Dates: start: 20091210, end: 20101006
  2. TRACLEER [Suspect]
     Indication: PULMONARY ARTERIAL HYPERTENSION
     Dosage: 125 MG BID, ORAL, 62.5 MG, BID, ORAL
     Route: 048
     Dates: start: 20091023, end: 20091209

REACTIONS (6)
  - FEELING HOT [None]
  - FLUID RETENTION [None]
  - NIGHT SWEATS [None]
  - HOT FLUSH [None]
  - WEIGHT INCREASED [None]
  - DYSPNOEA [None]
